FAERS Safety Report 21324108 (Version 2)
Quarter: 2022Q3

REPORT INFORMATION
  Report Type: Spontaneous
  Country: US (occurrence: US)
  Receive Date: 20220912
  Receipt Date: 20220921
  Transmission Date: 20221026
  Serious: Yes (Death, Hospitalization)
  Sender: FDA-Public Use
  Company Number: US-TEVA-2022-US-2072536

PATIENT
  Age: 8 Decade
  Sex: Male

DRUGS (14)
  1. BENDAMUSTINE [Suspect]
     Active Substance: BENDAMUSTINE
     Indication: Waldenstrom^s macroglobulinaemia
     Dosage: ONE CYCLE
     Route: 065
     Dates: start: 201908, end: 201908
  2. BENDAMUSTINE [Suspect]
     Active Substance: BENDAMUSTINE
     Indication: Myelodysplastic syndrome
  3. LENALIDOMIDE [Suspect]
     Active Substance: LENALIDOMIDE
     Indication: Waldenstrom^s macroglobulinaemia
     Dosage: 10 MG FOR 21/28 DAYS
     Route: 065
     Dates: start: 2014
  4. LENALIDOMIDE [Suspect]
     Active Substance: LENALIDOMIDE
     Indication: Myelodysplastic syndrome
  5. AZACITIDINE [Suspect]
     Active Substance: AZACITIDINE
     Indication: Bone marrow conditioning regimen
     Route: 065
     Dates: start: 2015
  6. HUMAN IMMUNOGLOBULIN G [Suspect]
     Active Substance: HUMAN IMMUNOGLOBULIN G
     Indication: Waldenstrom^s macroglobulinaemia
     Dosage: 2 DOSES
     Route: 042
     Dates: start: 2016
  7. HUMAN IMMUNOGLOBULIN G [Suspect]
     Active Substance: HUMAN IMMUNOGLOBULIN G
     Indication: Myelodysplastic syndrome
  8. RITUXIMAB [Suspect]
     Active Substance: RITUXIMAB
     Indication: Waldenstrom^s macroglobulinaemia
     Dosage: FOUR CYCLES
     Route: 065
     Dates: start: 2015, end: 2018
  9. RITUXIMAB [Suspect]
     Active Substance: RITUXIMAB
     Indication: Myelodysplastic syndrome
     Route: 065
     Dates: start: 201908, end: 201908
  10. IBRUTINIB [Suspect]
     Active Substance: IBRUTINIB
     Indication: Waldenstrom^s macroglobulinaemia
     Route: 065
     Dates: start: 201808, end: 201903
  11. IBRUTINIB [Suspect]
     Active Substance: IBRUTINIB
     Indication: Myelodysplastic syndrome
  12. OBINUTUZUMAB [Suspect]
     Active Substance: OBINUTUZUMAB
     Indication: Waldenstrom^s macroglobulinaemia
     Route: 065
     Dates: start: 201808, end: 201903
  13. OBINUTUZUMAB [Suspect]
     Active Substance: OBINUTUZUMAB
     Indication: Myelodysplastic syndrome
  14. ELTROMBOPAG [Concomitant]
     Active Substance: ELTROMBOPAG
     Indication: Waldenstrom^s macroglobulinaemia
     Route: 065
     Dates: start: 2015

REACTIONS (5)
  - Gene mutation [Fatal]
  - Respiratory failure [Fatal]
  - Staphylococcal sepsis [Fatal]
  - Haemosiderosis [Fatal]
  - Iron overload [Fatal]

NARRATIVE: CASE EVENT DATE: 20200101
